FAERS Safety Report 22030061 (Version 1)
Quarter: 2023Q1

REPORT INFORMATION
  Report Type: Spontaneous
  Country: RO (occurrence: RO)
  Receive Date: 20230223
  Receipt Date: 20230223
  Transmission Date: 20230418
  Serious: Yes (Death, Other)
  Sender: FDA-Public Use
  Company Number: RO-JNJFOC-20230236622

PATIENT

DRUGS (1)
  1. IBRUTINIB [Suspect]
     Active Substance: IBRUTINIB
     Indication: Chronic lymphocytic leukaemia
     Route: 048
     Dates: start: 201601, end: 202106

REACTIONS (44)
  - COVID-19 [Fatal]
  - Musculoskeletal pain [Unknown]
  - Contusion [Unknown]
  - Hepatitis B reactivation [Unknown]
  - Arthritis [Unknown]
  - Hypertension [Unknown]
  - Lung neoplasm malignant [Unknown]
  - Supraventricular extrasystoles [Unknown]
  - Acute coronary syndrome [Recovered/Resolved]
  - Gastritis [Unknown]
  - Urinary tract infection [Unknown]
  - Brain neoplasm malignant [Unknown]
  - Second primary malignancy [Fatal]
  - Toxicity to various agents [Fatal]
  - Richter^s syndrome [Fatal]
  - Febrile neutropenia [Unknown]
  - Upper respiratory tract infection [Unknown]
  - Haemoptysis [Unknown]
  - Tendonitis [Unknown]
  - Pneumonia [Unknown]
  - Myalgia [Unknown]
  - Bradycardia [Unknown]
  - Neuropathy peripheral [Unknown]
  - Gastrointestinal haemorrhage [Unknown]
  - Neutropenia [Unknown]
  - Anaemia [Unknown]
  - Hypertransaminasaemia [Unknown]
  - Laryngeal cancer [Unknown]
  - Rash maculo-papular [Unknown]
  - Mouth ulceration [Unknown]
  - Sepsis [Unknown]
  - Cerebral haemorrhage [Unknown]
  - Skin cancer [Fatal]
  - Diarrhoea [Unknown]
  - Hepatic cancer [Unknown]
  - Infection [Fatal]
  - Atrial flutter [Unknown]
  - Skin infection [Unknown]
  - Haematological malignancy [Unknown]
  - Atrial fibrillation [Unknown]
  - Haemorrhage [Unknown]
  - Breast cancer [Unknown]
  - Thrombocytopenia [Unknown]
  - Colon cancer [Unknown]
